FAERS Safety Report 5035069-7 (Version None)
Quarter: 2006Q2

REPORT INFORMATION
  Report Type: 
  Country: None (occurrence: None)
  Receive Date: 20060622
  Receipt Date: 20060620
  Transmission Date: 20061013
  Serious: Yes (Other)
  Sender: FDA-Public Use
  Company Number: 214736

PATIENT
  Age: 33 Year
  Sex: Male
  Weight: 59 kg

DRUGS (9)
  1. RITUXAN (RITUXIMAB) CONC FOR SOLUTION FOR INFUSION [Suspect]
     Indication: NON-HODGKIN'S LYMPHOMA
     Dosage: 630 MG, UNK, INTRAVENOUS
     Route: 042
     Dates: start: 20020208
  2. ETOPOSIDE [Suspect]
     Indication: NON-HODGKIN'S LYMPHOMA
     Dosage: 80 MG, UNK, INTRAVENOUS
     Route: 042
     Dates: start: 20020209
  3. ONCOVIN [Suspect]
     Indication: NON-HODGKIN'S LYMPHOMA
     Dosage: 0.6 MG, UNK, UNK
     Route: 065
     Dates: start: 20020209
  4. DOXORUBICIN HYDROCHLORIDE [Suspect]
     Indication: NON-HODGKIN'S LYMPHOMA
     Dosage: 16 MG, UNK, INTRAVENOUS
     Route: 042
     Dates: start: 20020209
  5. PREDONINE (PREDNISOLONE ACETATE, PREDNISOLONE, PREDNISOLONE SODIUM SUC [Suspect]
     Indication: NON-HODGKIN'S LYMPHOMA
     Dosage: SEE IMAGE
     Route: 048
     Dates: start: 20020209, end: 20020212
  6. PREDONINE (PREDNISOLONE ACETATE, PREDNISOLONE, PREDNISOLONE SODIUM SUC [Suspect]
     Indication: NON-HODGKIN'S LYMPHOMA
     Dosage: SEE IMAGE
     Route: 048
     Dates: start: 20020314, end: 20020320
  7. CYCLOPHOSPHAMIDE [Suspect]
     Indication: NON-HODGKIN'S LYMPHOMA
     Dosage: 1200 MG, UNK, INTRAVENOUS
     Route: 042
     Dates: start: 20020214
  8. SOLU-CORTEF [Concomitant]
  9. RADIATION THERAPY (RADIATION THERAPY) [Concomitant]

REACTIONS (6)
  - BLOOD ALKALINE PHOSPHATASE INCREASED [None]
  - C-REACTIVE PROTEIN INCREASED [None]
  - HAEMOGLOBIN DECREASED [None]
  - INFECTION [None]
  - NEUROPATHY PERIPHERAL [None]
  - PANCYTOPENIA [None]
